FAERS Safety Report 8958446 (Version 1)
Quarter: 2012Q4

REPORT INFORMATION
  Report Type: Spontaneous
  Country: US (occurrence: None)
  Receive Date: 20121205
  Receipt Date: 20121205
  Transmission Date: 20130627
  Serious: No
  Sender: FDA-Public Use
  Company Number: None

PATIENT
  Age: 54 Year
  Sex: Male
  Weight: 86.4 kg

DRUGS (1)
  1. DULOXETINE [Suspect]
     Dosage: 20 MG AT BEDTIME PO
     Route: 048

REACTIONS (1)
  - Therapeutic response decreased [None]
